FAERS Safety Report 10973176 (Version 1)
Quarter: 2015Q2

REPORT INFORMATION
  Report Type: Report from Study
  Country: NL (occurrence: NL)
  Receive Date: 20150401
  Receipt Date: 20150401
  Transmission Date: 20150821
  Serious: Yes (Death, Hospitalization, Other)
  Sender: FDA-Public Use
  Company Number: NL-AMGEN-NLDSL2015029846

PATIENT
  Age: 72 Year
  Sex: Male

DRUGS (1)
  1. XGEVA [Suspect]
     Active Substance: DENOSUMAB
     Indication: PRODUCT USED FOR UNKNOWN INDICATION
     Dosage: 120 MG, Q4WK
     Route: 058
     Dates: start: 20140120

REACTIONS (3)
  - Localised infection [Unknown]
  - Death [Fatal]
  - Pneumonia [Unknown]
